FAERS Safety Report 5277326-5 (Version None)
Quarter: 2007Q1

REPORT INFORMATION
  Report Type: 
  Country: None (occurrence: None)
  Receive Date: 20070327
  Receipt Date: 20070315
  Transmission Date: 20070707
  Serious: Yes (Other)
  Sender: FDA-Public Use
  Company Number: US-MERCK-0703USA03006

PATIENT
  Age: 79 Year
  Sex: Male

DRUGS (2)
  1. COZAAR [Suspect]
     Route: 048
  2. ATENOLOL [Suspect]
     Route: 065

REACTIONS (2)
  - CARDIAC DISORDER [None]
  - FATIGUE [None]
